FAERS Safety Report 8258479-3 (Version None)
Quarter: 2012Q2

REPORT INFORMATION
  Report Type: 
  Country: None (occurrence: None)
  Receive Date: 20120404
  Receipt Date: 20120330
  Transmission Date: 20120825
  Serious: Yes (Other)
  Sender: FDA-Public Use
  Company Number: FR-AMGEN-FRASP2011058224

PATIENT
  Age: 60 Year
  Sex: Female
  Weight: 73 kg

DRUGS (6)
  1. PROPRANOLOL [Concomitant]
     Indication: HYPERTENSION
     Dosage: UNK UNK, BID
     Route: 048
  2. EZETIMIBE [Concomitant]
     Indication: HYPERCHOLESTEROLAEMIA
     Dosage: UNK UNK, QD
     Route: 048
  3. ARANESP [Suspect]
     Indication: ANAEMIA
     Dosage: 30 MUG, QMO
     Route: 058
     Dates: start: 20110921, end: 20110921
  4. VALSARTAN [Concomitant]
     Indication: HYPERTENSION
     Dosage: UNK
     Route: 048
  5. LASIX [Concomitant]
     Indication: HYPERTENSION
     Dosage: UNK UNK, QD
     Route: 048
  6. IPERTEN [Concomitant]
     Indication: HYPERTENSION
     Dosage: UNK UNK, QD
     Route: 048

REACTIONS (3)
  - OCULAR HYPERTENSION [None]
  - VISUAL IMPAIRMENT [None]
  - HYPERTENSION [None]
